FAERS Safety Report 5254515-7 (Version None)
Quarter: 2007Q1

REPORT INFORMATION
  Report Type: 
  Country: None (occurrence: None)
  Receive Date: 20061201
  Receipt Date: 20060905
  Transmission Date: 20070707
  Serious: No
  Sender: FDA-Public Use
  Company Number: 2006PV020731

PATIENT
  Age: 43 Year
  Sex: Female

DRUGS (12)
  1. BYETTA [Suspect]
     Indication: DIABETES MELLITUS NON-INSULIN-DEPENDENT
     Dosage: SEE IMAGE
     Route: 058
     Dates: start: 20060501, end: 20060601
  2. BYETTA [Suspect]
     Indication: DIABETES MELLITUS NON-INSULIN-DEPENDENT
     Dosage: SEE IMAGE
     Route: 058
     Dates: start: 20060601
  3. HYDROCHLOROTHIAZIDE [Concomitant]
  4. LISINOPRIL [Concomitant]
  5. ALTACE [Concomitant]
  6. GLUCOPHAGE [Concomitant]
  7. ZOCOR [Concomitant]
  8. ACIPHEX [Concomitant]
  9. DETROL [Concomitant]
  10. ASPIRIN [Concomitant]
  11. MULTI-VITAMINS [Concomitant]
  12. ZOLOFT [Concomitant]

REACTIONS (7)
  - COLITIS ULCERATIVE [None]
  - FLUID RETENTION [None]
  - OEDEMA PERIPHERAL [None]
  - RENAL IMPAIRMENT [None]
  - SWELLING FACE [None]
  - URINARY TRACT INFECTION [None]
  - WEIGHT DECREASED [None]
